FAERS Safety Report 8100573-1 (Version None)
Quarter: 2012Q1

REPORT INFORMATION
  Report Type: 
  Country: None (occurrence: None)
  Receive Date: 20120129
  Receipt Date: 20111117
  Transmission Date: 20120608
  Serious: No
  Sender: FDA-Public Use
  Company Number: US-ABBOTT-11P-163-0875534-00

PATIENT
  Sex: Female
  Weight: 52.21 kg

DRUGS (4)
  1. UNKNOWN BLOOD PRESSURE MEDS [Concomitant]
     Indication: PRODUCT USED FOR UNKNOWN INDICATION
  2. HUMIRA [Suspect]
     Indication: RHEUMATOID ARTHRITIS
     Route: 058
     Dates: start: 20110622
  3. METOPROLOL TARTRATE [Concomitant]
     Indication: HYPERTENSION
  4. COUMADIN [Concomitant]
     Indication: PRODUCT USED FOR UNKNOWN INDICATION

REACTIONS (3)
  - WEIGHT INCREASED [None]
  - FLUID RETENTION [None]
  - HEADACHE [None]
